FAERS Safety Report 20861283 (Version 3)
Quarter: 2023Q2

REPORT INFORMATION
  Report Type: Spontaneous
  Country: DE (occurrence: DE)
  Receive Date: 20220523
  Receipt Date: 20230411
  Transmission Date: 20230722
  Serious: Yes (Congenital Anomaly, Other)
  Sender: FDA-Public Use
  Company Number: DE-MACLEODS PHARMA UK LTD-MAC2022035562

PATIENT
  Age: 39 Week
  Sex: Female
  Weight: 3.175 kg

DRUGS (2)
  1. NEVIRAPINE [Suspect]
     Active Substance: NEVIRAPINE
     Indication: Foetal exposure during pregnancy
     Dosage: 400 MILLIGRAM, QD (PRIOR TO CONCEPTION, 1 COURSE, FIRST TRIMESTER OF PREGNANCY, MOTHER DOSE 400 MG)
     Route: 064
  2. EMTRICITABINE\TENOFOVIR DISOPROXIL [Suspect]
     Active Substance: EMTRICITABINE\TENOFOVIR DISOPROXIL
     Indication: Foetal exposure during pregnancy
     Dosage: (MATERNAL EXPOSURE DURING PREGNANCY: 445 MG/DAY, QD, PRIOR TO CONCEPTION, 1 COURSE, FIRST TRIMESTER
     Route: 064

REACTIONS (2)
  - Foetal exposure during pregnancy [Unknown]
  - Ventricular septal defect [Unknown]
